FAERS Safety Report 6150253-7 (Version None)
Quarter: 2009Q2

REPORT INFORMATION
  Report Type: 
  Country: None (occurrence: None)
  Receive Date: 20090409
  Receipt Date: 20090103
  Transmission Date: 20091009
  Serious: Yes (Other)
  Sender: FDA-Public Use
  Company Number: US-PFIZER INC-2008159035

PATIENT
  Sex: Female
  Weight: 73.028 kg

DRUGS (15)
  1. CHANTIX [Suspect]
     Indication: SMOKING CESSATION THERAPY
     Dosage: FREQUENCY: EVERYDAY;
     Route: 048
     Dates: start: 20081214
  2. ZYPREXA [Concomitant]
     Indication: PSYCHOTIC DISORDER
     Dosage: UNK
  3. EFFEXOR [Concomitant]
     Indication: DEPRESSION
     Dosage: UNK
  4. CLONIDINE [Concomitant]
     Dosage: UNK
  5. KLONOPIN [Concomitant]
     Dosage: UNK
  6. FLEXERIL [Concomitant]
     Dosage: UNK
  7. NEURONTIN [Concomitant]
     Dosage: UNK
  8. PRILOSEC [Concomitant]
     Dosage: UNK
  9. ZOCOR [Concomitant]
     Dosage: UNK
  10. LITHIUM CARBONATE [Concomitant]
     Indication: BIPOLAR DISORDER
     Dosage: UNK
  11. COLACE [Concomitant]
     Dosage: UNK
  12. DUPHALAC [Concomitant]
     Dosage: UNK
  13. TRILAFON [Concomitant]
     Indication: PSYCHOTIC DISORDER
  14. ARTANE [Concomitant]
  15. SUCRETS [Concomitant]
     Dosage: UNK

REACTIONS (2)
  - HALLUCINATION, AUDITORY [None]
  - HALLUCINATION, VISUAL [None]
